FAERS Safety Report 18171251 (Version 2)
Quarter: 2020Q3

REPORT INFORMATION
  Report Type: Report from Study
  Country: US (occurrence: US)
  Receive Date: 20200819
  Receipt Date: 20200831
  Transmission Date: 20201103
  Serious: Yes (Death, Other)
  Sender: FDA-Public Use
  Company Number: US-BRISTOL-MYERS SQUIBB COMPANY-BMS-2020-066335

PATIENT
  Age: 20 Year
  Sex: Female

DRUGS (10)
  1. NIVOLUMAB [Suspect]
     Active Substance: NIVOLUMAB
     Indication: ACUTE MYELOID LEUKAEMIA
     Dosage: 225 MILLIGRAM PER DAY
     Route: 065
     Dates: start: 20200722, end: 20200722
  2. LIPID [Concomitant]
     Indication: NUTRITIONAL SUPPLEMENTATION
     Dosage: UNK
     Route: 042
     Dates: start: 20200811
  3. CALCIUM CHLORIDE. [Concomitant]
     Active Substance: CALCIUM CHLORIDE
     Indication: HYPOCALCAEMIA
     Dosage: 1000 MILLIGRAM
     Route: 042
     Dates: start: 20200806, end: 20200806
  4. HYDROMORPHONE [Concomitant]
     Active Substance: HYDROMORPHONE
     Indication: PAIN
     Dosage: CONTINUOUS IV INFUSION
     Route: 065
     Dates: start: 20200603
  5. HYDROCORTISONE. [Concomitant]
     Active Substance: HYDROCORTISONE
     Indication: PROPHYLAXIS
     Dosage: 170 MILLIGRAM
     Route: 042
     Dates: start: 20200806, end: 20200806
  6. FAMOTIDINE. [Concomitant]
     Active Substance: FAMOTIDINE
     Indication: ABDOMINAL PAIN
     Dosage: 20 MILLIGRAM, PRN
     Route: 042
     Dates: start: 20200806, end: 20200823
  7. 5?AZACYTIDINE [Suspect]
     Active Substance: AZACITIDINE
     Indication: ACUTE MYELOID LEUKAEMIA
     Dosage: 135.0 MILLIGRAM PER DAY
     Route: 065
     Dates: start: 20200722, end: 20200728
  8. FUROSEMIDE. [Concomitant]
     Active Substance: FUROSEMIDE
     Indication: FLUID OVERLOAD
     Dosage: 15 MILLIGRAM, Q12H
     Route: 048
     Dates: start: 20200805, end: 20200806
  9. HYDROXYUREA. [Concomitant]
     Active Substance: HYDROXYUREA
     Indication: ACUTE MYELOID LEUKAEMIA
     Dosage: 1500 MILLIGRAM, BID
     Route: 048
     Dates: start: 20200806, end: 20200807
  10. CITALOPRAM [Concomitant]
     Active Substance: CITALOPRAM HYDROBROMIDE
     Indication: ANXIETY
     Dosage: 20 MILLIGRAM, QD
     Route: 048
     Dates: start: 20200805

REACTIONS (3)
  - Malignant neoplasm progression [Fatal]
  - Cardiac arrest [Fatal]
  - Pericardial effusion [Not Recovered/Not Resolved]

NARRATIVE: CASE EVENT DATE: 20200807
